FAERS Safety Report 19428601 (Version 1)
Quarter: 2021Q2

REPORT INFORMATION
  Report Type: Spontaneous
  Country: CA (occurrence: CA)
  Receive Date: 20210616
  Receipt Date: 20210616
  Transmission Date: 20210717
  Serious: Yes (Hospitalization, Other)
  Sender: FDA-Public Use
  Company Number: CA-BRISTOL-MYERS SQUIBB COMPANY-BMS-2021-055628

PATIENT
  Age: 65 Year
  Sex: Male
  Weight: 85 kg

DRUGS (3)
  1. NIVOLUMAB [Suspect]
     Active Substance: NIVOLUMAB
     Indication: RENAL NEOPLASM
     Dosage: 246 MILLIGRAM, Q3WK
     Route: 042
  2. YERVOY [Suspect]
     Active Substance: IPILIMUMAB
     Indication: RENAL NEOPLASM
     Dosage: 82 MILLIGRAM, Q3WK
     Route: 042
  3. TRIMETHOPRIM SULFAMETHOXAZOLE [Suspect]
     Active Substance: SULFAMETHOXAZOLE\TRIMETHOPRIM
     Indication: ANTIFUNGAL PROPHYLAXIS
     Dosage: 1.0 DOSAGE FORM, 3 EVERY ONE WEEK
     Route: 048

REACTIONS (4)
  - Enteritis [Recovered/Resolved]
  - Colitis [Recovered/Resolved]
  - Prescribed underdose [Unknown]
  - Tubulointerstitial nephritis [Recovered/Resolved]
